FAERS Safety Report 10878998 (Version 5)
Quarter: 2016Q1

REPORT INFORMATION
  Report Type: Spontaneous
  Country: US (occurrence: US)
  Receive Date: 20150302
  Receipt Date: 20160129
  Transmission Date: 20160525
  Serious: Yes (Other)
  Sender: FDA-Public Use
  Company Number: US-PFIZER INC-2015071194

PATIENT
  Age: 54 Year
  Sex: Male

DRUGS (8)
  1. PRAVASTATIN [Concomitant]
     Active Substance: PRAVASTATIN\PRAVASTATIN SODIUM
     Dosage: UNK
     Route: 048
  2. PROMETHAZINE [Concomitant]
     Active Substance: PROMETHAZINE\PROMETHAZINE HYDROCHLORIDE
     Indication: NAUSEA
     Dosage: 25 MG, (1 TABLET(S) PO Q6H), AS NEEDED
     Route: 048
     Dates: start: 20160104
  3. LYRICA [Suspect]
     Active Substance: PREGABALIN
     Dosage: STRENGTH: 150 MG AT 1 PO QAM, 1 PO Q NOON, 2 PO QHS
     Route: 048
     Dates: start: 20150903
  4. PERCOCET [Concomitant]
     Active Substance: ACETAMINOPHEN\OXYCODONE HYDROCHLORIDE
     Dosage: 1 DF, ((OXYCODONE HYDROCHLORIDE-10 MG, PARACETAMOL-325 MG), 1 TABLET(S) PO FIVE TIMES DAILY)
     Route: 048
     Dates: start: 20160104
  5. XANAX [Concomitant]
     Active Substance: ALPRAZOLAM
     Dosage: UNK
     Route: 048
  6. LISINOPRIL. [Concomitant]
     Active Substance: LISINOPRIL
     Dosage: UNK
     Route: 048
  7. CARVEDILOL. [Concomitant]
     Active Substance: CARVEDILOL
     Route: 048
  8. ZANAFLEX [Concomitant]
     Active Substance: TIZANIDINE HYDROCHLORIDE
     Dosage: 4 MG, 3X/DAY
     Route: 048
     Dates: start: 20160104

REACTIONS (3)
  - Arthropathy [Unknown]
  - Myalgia [Unknown]
  - Drug screen false positive [Unknown]
